FAERS Safety Report 6109457-1 (Version None)
Quarter: 2009Q1

REPORT INFORMATION
  Report Type: 
  Country: None (occurrence: None)
  Receive Date: 20090306
  Receipt Date: 20090306
  Transmission Date: 20090719
  Serious: No
  Sender: FDA-Public Use
  Company Number: None

PATIENT
  Age: 55 Year
  Sex: Female
  Weight: 64.4108 kg

DRUGS (1)
  1. LEVAQUIN [Suspect]
     Indication: SINUSITIS
     Dosage: 750MG 1XDAILY
     Dates: start: 20081208, end: 20081228

REACTIONS (6)
  - ARTHRALGIA [None]
  - BONE DISORDER [None]
  - LIGAMENT DISORDER [None]
  - MYALGIA [None]
  - MYOSITIS [None]
  - TENDONITIS [None]
